FAERS Safety Report 20611990 (Version 1)
Quarter: 2022Q1

REPORT INFORMATION
  Report Type: Spontaneous
  Country: CN (occurrence: CN)
  Receive Date: 20220318
  Receipt Date: 20220318
  Transmission Date: 20220423
  Serious: Yes (Hospitalization)
  Sender: FDA-Public Use
  Company Number: CN-BAXTER-2022BAX005891

PATIENT
  Age: 52 Year
  Sex: Female
  Weight: 60 kg

DRUGS (8)
  1. CYCLOPHOSPHAMIDE [Suspect]
     Active Substance: CYCLOPHOSPHAMIDE
     Indication: Breast cancer female
     Dosage: 0.9% SODIUM CHLORIDE INJECTION (500 ML) + CYCLOPHOSPHAMIDE FOR INJECTION (980 MG)
     Route: 041
     Dates: start: 20220222, end: 20220222
  2. CYCLOPHOSPHAMIDE [Suspect]
     Active Substance: CYCLOPHOSPHAMIDE
     Dosage: DOSE RE-INTRODUCED: 0.9% SODIUM CHLORIDE INJECTION + CYCLOPHOSPHAMIDE FOR INJECTION
     Route: 041
  3. DEXTROSE [Suspect]
     Active Substance: DEXTROSE
     Indication: Medication dilution
     Dosage: GLUCOSE INJECTION (500 ML) + PIRARUBICIN HYDROCHLORIDE FOR INJECTION (80 MG)
     Route: 041
     Dates: start: 20220222, end: 20220222
  4. DEXTROSE [Suspect]
     Active Substance: DEXTROSE
     Dosage: DOSE RE-INTRODUCED: GLUCOSE INJECTION + PIRARUBICIN HYDROCHLORIDE FOR INJECTION
     Route: 041
  5. SODIUM CHLORIDE [Suspect]
     Active Substance: SODIUM CHLORIDE
     Indication: Medication dilution
     Dosage: 0.9% SODIUM CHLORIDE INJECTION (500 ML) + CYCLOPHOSPHAMIDE FOR INJECTION (980 MG)
     Route: 041
     Dates: start: 20220222, end: 20220222
  6. SODIUM CHLORIDE [Suspect]
     Active Substance: SODIUM CHLORIDE
     Dosage: DOSE RE-INTRODUCED: 0.9% SODIUM CHLORIDE INJECTION + CYCLOPHOSPHAMIDE FOR INJECTION
     Route: 041
  7. PIRARUBICIN HYDROCHLORIDE [Suspect]
     Active Substance: PIRARUBICIN HYDROCHLORIDE
     Indication: Breast cancer female
     Dosage: GLUCOSE INJECTION (500 ML) + PIRARUBICIN HYDROCHLORIDE FOR INJECTION (80 MG)
     Route: 041
     Dates: start: 20220222, end: 20220222
  8. PIRARUBICIN HYDROCHLORIDE [Suspect]
     Active Substance: PIRARUBICIN HYDROCHLORIDE
     Dosage: DOSE RE-INTRODUCED: GLUCOSE INJECTION + PIRARUBICIN HYDROCHLORIDE FOR INJECTION
     Route: 041

REACTIONS (1)
  - Myelosuppression [Recovering/Resolving]

NARRATIVE: CASE EVENT DATE: 20220303
